FAERS Safety Report 24364060 (Version 3)
Quarter: 2025Q3

REPORT INFORMATION
  Report Type: Spontaneous
  Country: JP (occurrence: JP)
  Receive Date: 20240925
  Receipt Date: 20250912
  Transmission Date: 20251021
  Serious: Yes (Death)
  Sender: ELI LILLY AND COMPANY
  Company Number: JP-ELI_LILLY_AND_COMPANY-JP202408007514

PATIENT
  Age: 66 Year
  Sex: Male
  Weight: 58.2 kg

DRUGS (14)
  1. NECITUMUMAB [Suspect]
     Active Substance: NECITUMUMAB
     Indication: Squamous cell carcinoma of lung
     Route: 041
     Dates: start: 20240802
  2. GEMCITABINE HYDROCHLORIDE [Suspect]
     Active Substance: GEMCITABINE HYDROCHLORIDE
     Indication: Squamous cell carcinoma of lung
     Route: 041
     Dates: start: 20240802
  3. CISPLATIN [Suspect]
     Active Substance: CISPLATIN
     Indication: Squamous cell carcinoma of lung
     Route: 041
     Dates: start: 20240802
  4. MAGNESIUM SULFATE [Concomitant]
     Active Substance: MAGNESIUM SULFATE
     Route: 065
     Dates: start: 20240802, end: 20240802
  5. ALOXI [Concomitant]
     Active Substance: PALONOSETRON HYDROCHLORIDE
     Route: 065
     Dates: start: 20240802
  6. DEXAMETHASONE SODIUM PHOSPHATE [Concomitant]
     Active Substance: DEXAMETHASONE SODIUM PHOSPHATE
     Route: 065
     Dates: start: 20240802
  7. FOSNETUPITANT CHLORIDE HYDROCHLORIDE [Concomitant]
     Active Substance: FOSNETUPITANT CHLORIDE HYDROCHLORIDE
     Route: 065
     Dates: start: 20240802
  8. SODIUM CHLORIDE [Concomitant]
     Active Substance: SODIUM CHLORIDE
     Route: 065
     Dates: start: 20240802
  9. DEXTROSE [Concomitant]
     Active Substance: DEXTROSE MONOHYDRATE
     Route: 065
     Dates: start: 20240802
  10. MAGNESOL [GLUCOSE;MAGNESIUM SULFATE] [Concomitant]
     Route: 065
     Dates: start: 20240802
  11. KCL CORRECTIVE [Concomitant]
     Route: 065
     Dates: start: 20240802
  12. SOLITA T NO. 1 [Concomitant]
  13. MANNITOL [Concomitant]
     Active Substance: MANNITOL
     Route: 065
     Dates: start: 20240802
  14. DECADRON [Concomitant]
     Active Substance: DEXAMETHASONE
     Route: 048
     Dates: start: 20240802

REACTIONS (2)
  - COVID-19 [Fatal]
  - Decreased appetite [Recovering/Resolving]

NARRATIVE: CASE EVENT DATE: 20240803
